FAERS Safety Report 7738012-2 (Version None)
Quarter: 2011Q3

REPORT INFORMATION
  Report Type: 
  Country: None (occurrence: None)
  Receive Date: 20110906
  Receipt Date: 20110823
  Transmission Date: 20111222
  Serious: Yes (Hospitalization)
  Sender: FDA-Public Use
  Company Number: None

PATIENT
  Age: 24 Year
  Sex: Female
  Weight: 48.9885 kg

DRUGS (1)
  1. CLINDAMYCIN AND BENZOYL PEROXIDE [Suspect]
     Indication: ACNE
     Dosage: TOPICAL
     Route: 061
     Dates: start: 20110628

REACTIONS (2)
  - ANAEMIA [None]
  - DYSFUNCTIONAL UTERINE BLEEDING [None]
